FAERS Safety Report 16634859 (Version 1)
Quarter: 2019Q3

REPORT INFORMATION
  Report Type: Spontaneous
  Country: FR (occurrence: FR)
  Receive Date: 20190726
  Receipt Date: 20190726
  Transmission Date: 20191004
  Serious: Yes (Hospitalization)
  Sender: FDA-Public Use
  Company Number: FR-ZYDUS-039015

PATIENT
  Age: 73 Year
  Sex: Male
  Weight: 98 kg

DRUGS (15)
  1. ESCITALOPRAM/ESCITALOPRAM OXALATE [Concomitant]
  2. MANIDIPINE/MANIDIPINE HYDROCHLORIDE [Concomitant]
  3. IVABRADINE/IVABRADINE HYDROCHLORIDE [Concomitant]
  4. INSULIN [Concomitant]
     Active Substance: INSULIN NOS
  5. OMEPRAZOLE. [Concomitant]
     Active Substance: OMEPRAZOLE
  6. EZETIMIBE/SIMVASTATIN [Concomitant]
  7. METFORMIN [Suspect]
     Active Substance: METFORMIN HYDROCHLORIDE
     Indication: DIABETES MELLITUS
     Route: 048
     Dates: end: 20190318
  8. SALBUTAMOL/SALBUTAMOL SULFATE [Concomitant]
  9. CANDESARTAN. [Suspect]
     Active Substance: CANDESARTAN
     Indication: HYPERTENSION
     Route: 048
     Dates: end: 20190318
  10. ATROPA BELLADONNA EXTRACT/CAFFEINE/PAPAVER SOMNIFERUM TINCTURE/PARACETAMOL [Concomitant]
  11. FUROSEMIDE/FUROSEMIDE SODIUM/FUROSEMIDE XANTINOL [Concomitant]
  12. ALLOPURINOL/ALLOPURINOL SODIUM [Concomitant]
  13. CLOPIDOGREL [Concomitant]
     Active Substance: CLOPIDOGREL BISULFATE
  14. AMILORIDE/AMILORIDE HYDROCHLORIDE [Concomitant]
  15. METFORMIN [Concomitant]
     Active Substance: METFORMIN HYDROCHLORIDE

REACTIONS (1)
  - Acute kidney injury [Recovered/Resolved]

NARRATIVE: CASE EVENT DATE: 20190318
